FAERS Safety Report 8171709-1 (Version None)
Quarter: 2012Q1

REPORT INFORMATION
  Report Type: 
  Country: None (occurrence: None)
  Receive Date: 20120228
  Receipt Date: 20120221
  Transmission Date: 20120608
  Serious: Yes (Hospitalization)
  Sender: FDA-Public Use
  Company Number: US-ABBOTT-12P-163-0898705-00

PATIENT
  Sex: Female
  Weight: 55.388 kg

DRUGS (7)
  1. HUMIRA [Suspect]
     Dates: start: 20100601
  2. VIMOVO [Concomitant]
     Indication: INFLAMMATION
  3. FOLIC ACID [Concomitant]
     Indication: VITAMIN SUPPLEMENTATION
  4. VIMOVO [Concomitant]
     Indication: CHEST PAIN
     Dosage: AS NEEDED, TAKES RARELY
  5. HUMIRA [Suspect]
     Indication: RHEUMATOID ARTHRITIS
     Dates: end: 20100301
  6. VIMOVO [Concomitant]
     Indication: ARTHRITIS
  7. VITAMIN D [Concomitant]
     Indication: VITAMIN SUPPLEMENTATION

REACTIONS (5)
  - BLOOD TEST ABNORMAL [None]
  - MENORRHAGIA [None]
  - IDIOPATHIC THROMBOCYTOPENIC PURPURA [None]
  - THROMBOSIS [None]
  - RASH MACULAR [None]
